FAERS Safety Report 6291510-3 (Version None)
Quarter: 2009Q3

REPORT INFORMATION
  Report Type: 
  Country: None (occurrence: None)
  Receive Date: 20090730
  Receipt Date: 20090720
  Transmission Date: 20100115
  Serious: Yes (Disabling, Other)
  Sender: FDA-Public Use
  Company Number: FI-SANOFI-SYNTHELABO-F01200900714

PATIENT
  Sex: Male

DRUGS (2)
  1. CAPECITABINE [Suspect]
     Indication: COLON CANCER
     Dosage: UNK
     Route: 048
  2. OXALIPLATIN [Suspect]
     Indication: COLON CANCER
     Dosage: UNK
     Route: 042

REACTIONS (3)
  - EXTRAVASATION [None]
  - LYMPHATIC DISORDER [None]
  - THROMBOCYTOPENIA [None]
